FAERS Safety Report 19694639 (Version 1)
Quarter: 2021Q3

REPORT INFORMATION
  Report Type: Spontaneous
  Country: DE (occurrence: DE)
  Receive Date: 20210812
  Receipt Date: 20210812
  Transmission Date: 20211014
  Serious: Yes (Hospitalization, Other)
  Sender: FDA-Public Use
  Company Number: DE-SA-2021SA262341

PATIENT
  Age: 59 Year
  Sex: Male
  Weight: 57 kg

DRUGS (7)
  1. ACETYLSALICYLIC ACID [Suspect]
     Active Substance: ASPIRIN
     Dosage: 100 MG, 1?0?0?0
  2. SODIUM BICARBONATE. [Concomitant]
     Active Substance: SODIUM BICARBONATE
     Dosage: 1?0?1?0
  3. CLOPIDOGREL BISULFATE. [Suspect]
     Active Substance: CLOPIDOGREL BISULFATE
     Dosage: 75 MG, PAUSE
  4. EZETIMIBE AND SIMVASTATIN [Concomitant]
     Active Substance: EZETIMIBE\SIMVASTATIN
     Dosage: 10|80 MG, 0?0?1?0
  5. APIXABAN [Suspect]
     Active Substance: APIXABAN
     Dosage: 5 MG, 1?0?0?0
  6. FOLIC ACID. [Concomitant]
     Active Substance: FOLIC ACID
     Dosage: 5 MG, SCHEMA
  7. VITAMIN B12 [Concomitant]
     Active Substance: CYANOCOBALAMIN
     Dosage: SCHEMA

REACTIONS (8)
  - Pallor [Unknown]
  - General physical health deterioration [Unknown]
  - Electrocardiogram abnormal [Unknown]
  - Haematochezia [Unknown]
  - Abdominal pain [Unknown]
  - Dyspnoea [Unknown]
  - Anaemia [Unknown]
  - Lower gastrointestinal haemorrhage [Unknown]
